FAERS Safety Report 23677328 (Version 1)
Quarter: 2024Q1

REPORT INFORMATION
  Report Type: Spontaneous
  Country: AU (occurrence: AU)
  Receive Date: 20240327
  Receipt Date: 20240327
  Transmission Date: 20240409
  Serious: Yes (Other)
  Sender: FDA-Public Use
  Company Number: AU-JNJFOC-20240350694

PATIENT
  Age: 66 Year
  Sex: Female

DRUGS (7)
  1. RISPERIDONE [Suspect]
     Active Substance: RISPERIDONE
     Indication: Product used for unknown indication
     Dosage: 0.5 MG EACH MORNING
     Route: 048
     Dates: start: 201912, end: 20191230
  2. MIRTAZAPINE [Suspect]
     Active Substance: MIRTAZAPINE
     Indication: Product used for unknown indication
     Dosage: 15 MG X 0.5 A TABLET, ONLY TOOK ONE DOSE.
     Route: 065
     Dates: start: 20191129
  3. MIRTAZAPINE [Suspect]
     Active Substance: MIRTAZAPINE
     Route: 065
     Dates: start: 20191213
  4. MIRTAZAPINE [Suspect]
     Active Substance: MIRTAZAPINE
     Dosage: DOSE INCREASED UP TO 45 MG AND CONTINUED ON 45 MG
     Route: 065
     Dates: start: 20191230
  5. MIRTAZAPINE [Suspect]
     Active Substance: MIRTAZAPINE
     Dosage: DOSE REDUCED TO 30 MG
     Route: 065
     Dates: start: 20200323
  6. MIRTAZAPINE [Suspect]
     Active Substance: MIRTAZAPINE
     Dosage: DOSE REDUCED TO 15 MG
     Route: 065
     Dates: start: 20200513, end: 20200529
  7. MIRTAZAPINE [Suspect]
     Active Substance: MIRTAZAPINE
     Route: 065
     Dates: start: 20200604, end: 20200619

REACTIONS (6)
  - Taste disorder [Recovered/Resolved]
  - Fat tissue increased [Not Recovered/Not Resolved]
  - Constipation [Recovered/Resolved]
  - Dry mouth [Recovered/Resolved]
  - Oedema [Recovered/Resolved]
  - Weight increased [Not Recovered/Not Resolved]
